FAERS Safety Report 25255877 (Version 4)
Quarter: 2025Q3

REPORT INFORMATION
  Report Type: Spontaneous
  Country: US (occurrence: US)
  Receive Date: 20250430
  Receipt Date: 20250818
  Transmission Date: 20251020
  Serious: Yes (Other)
  Sender: PFIZER
  Company Number: US-PFIZER INC-202500089709

PATIENT
  Age: 71 Year
  Sex: Female
  Weight: 101.15 kg

DRUGS (2)
  1. ALDACTONE [Suspect]
     Active Substance: SPIRONOLACTONE
     Indication: Blood pressure abnormal
     Dosage: 25MG DAILY ORALLY
     Route: 048
     Dates: start: 2005, end: 2025
  2. ALDACTONE [Suspect]
     Active Substance: SPIRONOLACTONE
     Indication: Fluid intake reduced

REACTIONS (3)
  - Road traffic accident [Unknown]
  - Malaise [Not Recovered/Not Resolved]
  - Condition aggravated [Not Recovered/Not Resolved]

NARRATIVE: CASE EVENT DATE: 20080101
